FAERS Safety Report 22096502 (Version 1)
Quarter: 2023Q1

REPORT INFORMATION
  Report Type: Spontaneous
  Country: CA (occurrence: CA)
  Receive Date: 20230315
  Receipt Date: 20230315
  Transmission Date: 20230418
  Serious: Yes (Other)
  Sender: FDA-Public Use
  Company Number: CA-SAMSUNG BIOEPIS-SB-2023-06531

PATIENT
  Age: 38 Year
  Sex: Female

DRUGS (2)
  1. INFLIXIMAB [Suspect]
     Active Substance: INFLIXIMAB
     Indication: Crohn^s disease
     Route: 065
  2. PREDNISONE [Concomitant]
     Active Substance: PREDNISONE
     Indication: Product used for unknown indication
     Dosage: UNKNOWN
     Route: 065

REACTIONS (7)
  - Arthropathy [Unknown]
  - Condition aggravated [Unknown]
  - Decreased appetite [Unknown]
  - Haematochezia [Unknown]
  - Mucous stools [Unknown]
  - Inappropriate schedule of product administration [Unknown]
  - Off label use [Unknown]
